FAERS Safety Report 8934883 (Version 3)
Quarter: 2013Q1

REPORT INFORMATION
  Report Type: Spontaneous
  Country: US (occurrence: US)
  Receive Date: 20121129
  Receipt Date: 20130207
  Transmission Date: 20140127
  Serious: Yes (Other)
  Sender: FDA-Public Use
  Company Number: US-JHP PHARMACEUTICALS, LLC-JHP201200535

PATIENT
  Sex: Female

DRUGS (2)
  1. PITOCIN [Suspect]
     Indication: POSTPARTUM HAEMORRHAGE
     Dosage: UNK
     Route: 042
     Dates: start: 20121017, end: 201210
  2. METHERGINE [Suspect]
     Indication: POSTPARTUM HAEMORRHAGE
     Dosage: UNK
     Dates: start: 201210, end: 201210

REACTIONS (2)
  - Postpartum haemorrhage [Recovered/Resolved]
  - Drug ineffective [Recovered/Resolved]
